FAERS Safety Report 10174021 (Version 1)
Quarter: 2014Q2

REPORT INFORMATION
  Report Type: Spontaneous
  Country: US (occurrence: None)
  Receive Date: 20140514
  Receipt Date: 20140514
  Transmission Date: 20141212
  Serious: No
  Sender: FDA-Public Use
  Company Number: None

PATIENT
  Age: 55 Year
  Sex: Female
  Weight: 58.06 kg

DRUGS (1)
  1. LIDOCAINE HYDROCHLORIDE JELLY US [Suspect]
     Indication: PAIN
     Dosage: APPLY TO RIGHT WRIST FOUND TIMES DAILY APPLIED TO A SURFACE, USUALLY THE SKIN.
     Dates: start: 20140415, end: 20140425

REACTIONS (4)
  - Drug ineffective [None]
  - Product label issue [None]
  - Drug prescribing error [None]
  - Drug dispensing error [None]
